FAERS Safety Report 4494501-8 (Version None)
Quarter: 2004Q4

REPORT INFORMATION
  Report Type: 
  Country: None (occurrence: None)
  Receive Date: 20041102
  Receipt Date: 20041027
  Transmission Date: 20050328
  Serious: Yes (Death, Hospitalization)
  Sender: FDA-Public Use
  Company Number: 2004229592IT

PATIENT
  Age: 65 Year
  Sex: Male

DRUGS (5)
  1. CAMPTOSAR [Suspect]
     Indication: COLORECTAL CANCER METASTATIC
     Dosage: 600 MG, IV
     Route: 042
     Dates: start: 20040730, end: 20040730
  2. CETUXIMAB (CETUXIMAB) [Suspect]
     Indication: COLORECTAL CANCER METASTATIC
     Dosage: 690 IV; 435 MG, IV
     Route: 042
     Dates: start: 20040730, end: 20040730
  3. CETUXIMAB (CETUXIMAB) [Suspect]
     Indication: COLORECTAL CANCER METASTATIC
     Dosage: 690 IV; 435 MG, IV
     Route: 042
     Dates: start: 20040806, end: 20040806
  4. ONDANSETRON HCL [Concomitant]
  5. DEXAMETHASONE [Concomitant]

REACTIONS (6)
  - BONE MARROW TOXICITY [None]
  - COLORECTAL CANCER METASTATIC [None]
  - DEHYDRATION [None]
  - HEPATIC FAILURE [None]
  - MALIGNANT NEOPLASM PROGRESSION [None]
  - NEUTROPENIA [None]
